FAERS Safety Report 4410889-8 (Version None)
Quarter: 2004Q2

REPORT INFORMATION
  Report Type: 
  Country: None (occurrence: None)
  Receive Date: 20040630
  Receipt Date: 20040416
  Transmission Date: 20050107
  Serious: No
  Sender: FDA-Public Use
  Company Number: 04P-163-0257735-00

PATIENT
  Age: 60 Year
  Sex: Male
  Weight: 119.296 kg

DRUGS (13)
  1. HUMIRA [Suspect]
     Indication: RHEUMATOID ARTHRITIS
     Dosage: 40 MG, 1 IN 2 WK, SUBCUTANEOUS
     Route: 058
     Dates: start: 20030901
  2. METHOTREXATE SODIUM [Concomitant]
  3. PREDNISONE [Concomitant]
  4. GABAPENTIN [Concomitant]
  5. METOPROLOL [Concomitant]
  6. FLUOXETINE HCL [Concomitant]
  7. HYDROCHLOROTHIAZIDE [Concomitant]
  8. FOLIC ACID [Concomitant]
  9. TRAMADOL HCL [Concomitant]
  10. IBUPROFEN [Concomitant]
  11. ASPIRIN [Concomitant]
  12. MULTIVITAMIN [Concomitant]
  13. IRON [Concomitant]

REACTIONS (3)
  - ANAL FISSURE [None]
  - CONDITION AGGRAVATED [None]
  - HAEMORRHOIDS [None]
